FAERS Safety Report 7351073-8 (Version None)
Quarter: 2011Q1

REPORT INFORMATION
  Report Type: 
  Country: None (occurrence: None)
  Receive Date: 20110304
  Receipt Date: 20110218
  Transmission Date: 20110831
  Serious: Yes (Death)
  Sender: FDA-Public Use
  Company Number: UTC-005343

PATIENT
  Age: 71 Year
  Sex: Female
  Weight: 79.54 kg

DRUGS (4)
  1. LETARIRIS (AMBRISENTAN) [Concomitant]
  2. DIURETICS (DIURETICS) [Concomitant]
  3. REMODULIN [Suspect]
     Dosage: 46.08 UG/KG (0.032 UG/KG, 1 IN 1 MIN), SUBCUTANEOUS
     Route: 058
  4. REVATIO [Concomitant]

REACTIONS (1)
  - DEATH [None]
